FAERS Safety Report 8341830 (Version 3)
Quarter: 2013Q1

REPORT INFORMATION
  Report Type: Report from Study
  Country: DE (occurrence: DE)
  Receive Date: 20120118
  Receipt Date: 20130211
  Transmission Date: 20140127
  Serious: Yes (Other)
  Sender: FDA-Public Use
  Company Number: DE-UCBSA-048854

PATIENT
  Sex: Female

DRUGS (6)
  1. CERTOLIZUMAB PEGOL [Suspect]
     Indication: RHEUMATOID ARTHRITIS
     Route: 058
     Dates: start: 20110317, end: 20111224
  2. FOLCUR [Concomitant]
     Dosage: UNKNOWN DOSE
     Route: 048
     Dates: start: 20110224
  3. METEX [Concomitant]
     Indication: RHEUMATOID ARTHRITIS
     Route: 058
     Dates: start: 20110224, end: 20110728
  4. METEX [Concomitant]
     Indication: RHEUMATOID ARTHRITIS
     Route: 058
     Dates: start: 20110728, end: 20111007
  5. METEX [Concomitant]
     Indication: RHEUMATOID ARTHRITIS
     Route: 058
     Dates: start: 20111007, end: 20120118
  6. METEX [Concomitant]
     Indication: RHEUMATOID ARTHRITIS
     Route: 058
     Dates: start: 20120119

REACTIONS (1)
  - Psoriasis [Not Recovered/Not Resolved]
